FAERS Safety Report 6118812-5 (Version None)
Quarter: 2009Q1

REPORT INFORMATION
  Report Type: 
  Country: None (occurrence: None)
  Receive Date: 20090316
  Receipt Date: 20090303
  Transmission Date: 20090719
  Serious: Yes (Other)
  Sender: FDA-Public Use
  Company Number: US-BRISTOL-MYERS SQUIBB COMPANY-14516652

PATIENT
  Age: 31 Year
  Sex: Male

DRUGS (7)
  1. CARBOPLATIN [Suspect]
     Indication: CHORIOCARCINOMA
     Dosage: HIGH DOSE
  2. ETOPOSIDE [Suspect]
     Indication: CHORIOCARCINOMA
     Dosage: TREATED WITH 4 CYCLES; THEN GIVEN DAILY FOR 3 MONTHS
     Route: 048
  3. CISPLATIN [Suspect]
     Indication: CHORIOCARCINOMA
     Dosage: 4 CYCLES WITH WBRT AND 1 CYCLE UNDER SALVAGE CHEMOTHERAPY.
  4. IFOSFAMIDE [Suspect]
     Indication: CHORIOCARCINOMA
  5. BLEOMYCIN SULFATE [Suspect]
     Indication: CHORIOCARCINOMA
  6. VINBLASTINE [Suspect]
     Indication: CHORIOCARCINOMA
  7. RADIATION THERAPY [Suspect]
     Indication: CHORIOCARCINOMA
     Dosage: 1 DOSAGEFORM = 4140 CGY IN 18 FRACTIONS

REACTIONS (1)
  - PROGRESSIVE MULTIFOCAL LEUKOENCEPHALOPATHY [None]
